FAERS Safety Report 8600887-2 (Version None)
Quarter: 2012Q3

REPORT INFORMATION
  Report Type: 
  Country: None (occurrence: None)
  Receive Date: 20120817
  Receipt Date: 20120807
  Transmission Date: 20120928
  Serious: Yes (Hospitalization)
  Sender: FDA-Public Use
  Company Number: US-JNJFOC-20120805719

PATIENT
  Sex: Male
  Weight: 78.4 kg

DRUGS (2)
  1. REMICADE [Suspect]
     Indication: CROHN'S DISEASE
     Route: 042
     Dates: start: 20090508
  2. HUMIRA [Concomitant]
     Dates: start: 20110916

REACTIONS (1)
  - CROHN'S DISEASE [None]
